FAERS Safety Report 13154489 (Version 1)
Quarter: 2017Q1

REPORT INFORMATION
  Report Type: Spontaneous
  Country: US (occurrence: US)
  Receive Date: 20170124
  Receipt Date: 20170124
  Transmission Date: 20170428
  Serious: Yes (Life-Threatening, Disabling)
  Sender: FDA-Public Use
  Company Number: None

PATIENT
  Age: 69 Year
  Sex: Female
  Weight: 153 kg

DRUGS (30)
  1. XOPENEX INHALER [Concomitant]
  2. (VYTORIN) ZETIA [Concomitant]
  3. CALCIUM [Concomitant]
     Active Substance: CALCIUM
  4. GINKGO BILBOA [Concomitant]
     Active Substance: GINKGO
  5. MONTELUKAST - GENERIC SINGULAIR [Concomitant]
  6. SPIRONOLACTONE. [Concomitant]
     Active Substance: SPIRONOLACTONE
  7. LOVAZA [Concomitant]
     Active Substance: OMEGA-3-ACID ETHYL ESTERS
  8. VITAMIN D [Concomitant]
     Active Substance: CHOLECALCIFEROL
  9. VITAMIN E [Concomitant]
     Active Substance: .ALPHA.-TOCOPHEROL
  10. MULTIPLE VITAMIN/MINERAL [Concomitant]
  11. ASPIRIN. [Concomitant]
     Active Substance: ASPIRIN
  12. HYDROCHLOROTHIAZIDE. [Concomitant]
     Active Substance: HYDROCHLOROTHIAZIDE
  13. STRESS B COMPLEX [Concomitant]
  14. FENOFIBRATE. [Suspect]
     Active Substance: FENOFIBRATE
     Indication: BLOOD TRIGLYCERIDES INCREASED
     Dosage: ?          QUANTITY:26 TABLET(S);OTHER FREQUENCY:2 TABS PER WEEK;?
     Route: 048
     Dates: start: 20161212, end: 20161216
  15. NEBULIZER-ALBUTEROL [Concomitant]
  16. (VYTORIN) METFORMIN ER [Concomitant]
  17. MAGNESIUM [Concomitant]
     Active Substance: MAGNESIUM
  18. PROBIOTICS [Concomitant]
     Active Substance: PROBIOTICS NOS
  19. INSULIN [Concomitant]
     Active Substance: INSULIN NOS
  20. GENERIC PEPCID [Concomitant]
  21. LEVOXYL [Concomitant]
     Active Substance: LEVOTHYROXINE SODIUM
  22. ADVAIR HFA [Concomitant]
     Active Substance: FLUTICASONE PROPIONATE\SALMETEROL XINAFOATE
  23. SIMVASTATIN. [Concomitant]
     Active Substance: SIMVASTATIN
  24. LOSARTAN. [Concomitant]
     Active Substance: LOSARTAN
  25. PERCOCET [Concomitant]
     Active Substance: ACETAMINOPHEN\OXYCODONE HYDROCHLORIDE
  26. LORATADINE. [Concomitant]
     Active Substance: LORATADINE
  27. COENZYME Q10 [Concomitant]
     Active Substance: UBIDECARENONE
  28. MUCINEX D [Concomitant]
     Active Substance: GUAIFENESIN\PSEUDOEPHEDRINE HYDROCHLORIDE
  29. ROPINIROLE. [Concomitant]
     Active Substance: ROPINIROLE
  30. POLYETHYLENE GLYCOL [Concomitant]
     Active Substance: POLYETHYLENE GLYCOLS

REACTIONS (6)
  - Contusion [None]
  - Fatigue [None]
  - Pain [None]
  - Abasia [None]
  - Grip strength decreased [None]
  - Dyspnoea [None]

NARRATIVE: CASE EVENT DATE: 20170101
